FAERS Safety Report 7292528-4 (Version None)
Quarter: 2011Q1

REPORT INFORMATION
  Report Type: 
  Country: None (occurrence: None)
  Receive Date: 20110215
  Receipt Date: 20100506
  Transmission Date: 20110831
  Serious: Yes (Hospitalization)
  Sender: FDA-Public Use
  Company Number: DE-RANBAXY-2009RR-20486

PATIENT
  Age: 33 Year
  Sex: Female
  Weight: 97 kg

DRUGS (2)
  1. METAMIZOLE [Suspect]
     Indication: PYREXIA
     Dosage: 500 MG, UNK
     Route: 048
     Dates: start: 20080725, end: 20080729
  2. ACETAMINOPHEN [Suspect]
     Indication: PYREXIA
     Dosage: 500 MG, UNK
     Route: 048
     Dates: start: 20080722, end: 20080727

REACTIONS (1)
  - HEPATIC ENZYME INCREASED [None]
